FAERS Safety Report 23393411 (Version 1)
Quarter: 2024Q1

REPORT INFORMATION
  Report Type: Report from Study
  Country: US (occurrence: US)
  Receive Date: 20240111
  Receipt Date: 20240111
  Transmission Date: 20240409
  Serious: Yes (Other)
  Sender: FDA-Public Use
  Company Number: US-UCBSA-2023045055

PATIENT
  Sex: Female

DRUGS (2)
  1. CERTOLIZUMAB PEGOL [Suspect]
     Active Substance: CERTOLIZUMAB PEGOL
     Indication: Crohn^s disease
     Dosage: 400 MILLIGRAM, EV 2 WEEKS(QOW) (2X200 MG/ML) AT WEEKS 0, 2,4
     Route: 058
     Dates: start: 20230816
  2. CERTOLIZUMAB PEGOL [Suspect]
     Active Substance: CERTOLIZUMAB PEGOL
     Indication: Ankylosing spondylitis
     Dosage: 400 MILLIGRAM, EV 4 WEEKS
     Route: 058
     Dates: start: 2023

REACTIONS (11)
  - Ankylosing spondylitis [Unknown]
  - Pain [Unknown]
  - Sinusitis [Recovered/Resolved]
  - Nasal congestion [Recovered/Resolved]
  - Nasal inflammation [Recovered/Resolved]
  - Dyspnoea [Recovered/Resolved]
  - Sneezing [Unknown]
  - Stress [Unknown]
  - Neuralgia [Unknown]
  - Throat clearing [Unknown]
  - Tearfulness [Unknown]

NARRATIVE: CASE EVENT DATE: 20230101
